FAERS Safety Report 15777455 (Version 4)
Quarter: 2019Q3

REPORT INFORMATION
  Report Type: Report from Study
  Country: US (occurrence: US)
  Receive Date: 20181231
  Receipt Date: 20190930
  Transmission Date: 20191004
  Serious: Yes (Hospitalization, Other)
  Sender: FDA-Public Use
  Company Number: US-CLOVIS ONCOLOGY-CLO-2018-001615

PATIENT
  Age: 64 Year
  Sex: Female

DRUGS (3)
  1. RUBRACA [Suspect]
     Active Substance: RUCAPARIB CAMSYLATE
     Indication: OVARIAN CANCER
     Dosage: 300 MG, BID
     Route: 048
     Dates: start: 20181102
  2. RUBRACA [Suspect]
     Active Substance: RUCAPARIB CAMSYLATE
     Dosage: 600 MG, BID
     Route: 048
     Dates: start: 20181107
  3. RUBRACA [Suspect]
     Active Substance: RUCAPARIB CAMSYLATE
     Dosage: 600 MG, BID
     Route: 048
     Dates: start: 20181102

REACTIONS (17)
  - Alopecia [Unknown]
  - Fatigue [Unknown]
  - Product dose omission [Unknown]
  - Haemoglobin decreased [Unknown]
  - Abdominal discomfort [Unknown]
  - Hair growth rate abnormal [Unknown]
  - Nausea [Recovered/Resolved]
  - Carbohydrate antigen 125 increased [Recovering/Resolving]
  - Nasal congestion [Unknown]
  - Accidental underdose [Unknown]
  - Chapped lips [Unknown]
  - Renal function test abnormal [Unknown]
  - Thrombocytopenia [Unknown]
  - Dry skin [Unknown]
  - Nodule [Unknown]
  - Nasopharyngitis [Unknown]
  - Photosensitivity reaction [Not Recovered/Not Resolved]

NARRATIVE: CASE EVENT DATE: 2018
